FAERS Safety Report 8290017-1 (Version None)
Quarter: 2012Q2

REPORT INFORMATION
  Report Type: 
  Country: None (occurrence: None)
  Receive Date: 20120417
  Receipt Date: 20120405
  Transmission Date: 20120825
  Serious: Yes (Other)
  Sender: FDA-Public Use
  Company Number: JP-FRI-1000029790

PATIENT
  Age: 5 Decade
  Sex: Male

DRUGS (1)
  1. LEXAPRO [Suspect]
     Route: 048

REACTIONS (1)
  - CONVULSION [None]
